FAERS Safety Report 7953252-5 (Version None)
Quarter: 2011Q4

REPORT INFORMATION
  Report Type: 
  Country: None (occurrence: None)
  Receive Date: 20111201
  Receipt Date: 20111129
  Transmission Date: 20120403
  Serious: Yes (Other)
  Sender: FDA-Public Use
  Company Number: US-ROCHE-790737

PATIENT
  Sex: Female
  Weight: 59.02 kg

DRUGS (1)
  1. ACCUTANE [Suspect]
     Indication: ACNE CYSTIC
     Route: 065
     Dates: start: 19921117, end: 19930301

REACTIONS (7)
  - IRRITABLE BOWEL SYNDROME [None]
  - EMOTIONAL DISTRESS [None]
  - COLITIS ULCERATIVE [None]
  - INFLAMMATORY BOWEL DISEASE [None]
  - DRY SKIN [None]
  - HAEMORRHOIDS [None]
  - ANXIETY [None]
